FAERS Safety Report 6876197-0 (Version None)
Quarter: 2010Q3

REPORT INFORMATION
  Report Type: 
  Country: None (occurrence: None)
  Receive Date: 20100727
  Receipt Date: 20100708
  Transmission Date: 20110219
  Serious: Yes (Hospitalization)
  Sender: FDA-Public Use
  Company Number: A0866823A

PATIENT
  Age: 40 Year
  Sex: Female

DRUGS (3)
  1. AVANDIA [Suspect]
     Dates: start: 20020710, end: 20050410
  2. ATORVASTATIN [Concomitant]
  3. INSULIN [Concomitant]

REACTIONS (4)
  - CARDIAC FAILURE CONGESTIVE [None]
  - CORONARY ARTERY DISEASE [None]
  - ISCHAEMIC CARDIOMYOPATHY [None]
  - MYOCARDIAL INFARCTION [None]
